FAERS Safety Report 6115106-9 (Version None)
Quarter: 2009Q1

REPORT INFORMATION
  Report Type: 
  Country: None (occurrence: None)
  Receive Date: 20090313
  Receipt Date: 20090310
  Transmission Date: 20090719
  Serious: Yes (Other)
  Sender: FDA-Public Use
  Company Number: US-BAYER-200814947BCC

PATIENT
  Age: 81 Year
  Sex: Female

DRUGS (8)
  1. ASPIRIN [Suspect]
     Indication: DRUG USE FOR UNKNOWN INDICATION
  2. PLAVIX [Suspect]
     Indication: MYOCARDIAL INFARCTION
     Route: 048
     Dates: start: 20060801
  3. LANSOPRAZOLE [Concomitant]
  4. ATORVASTATIN [Concomitant]
  5. LISINOPRIL [Concomitant]
  6. MONTELUKAST SODIUM [Concomitant]
  7. OMEGA-3 TRIGLYCERIDES [Concomitant]
  8. HYDROCORTISONE [Concomitant]

REACTIONS (1)
  - HAEMORRHAGIC STROKE [None]
